FAERS Safety Report 25811722 (Version 1)
Quarter: 2025Q3

REPORT INFORMATION
  Report Type: Spontaneous
  Country: US (occurrence: US)
  Receive Date: 20250917
  Receipt Date: 20250917
  Transmission Date: 20251021
  Serious: Yes (Hospitalization, Other)
  Sender: ALEXION PHARMACEUTICALS
  Company Number: US-DSJP-DS-2025-164228-US

PATIENT
  Age: 42 Year
  Sex: Male

DRUGS (7)
  1. LYNPARZA [Suspect]
     Active Substance: OLAPARIB
     Indication: Papillary thyroid cancer
  2. LYNPARZA [Suspect]
     Active Substance: OLAPARIB
     Indication: Thyroid cancer metastatic
     Dosage: 150 MG, QD
  3. ENHERTU [Suspect]
     Active Substance: FAM-TRASTUZUMAB DERUXTECAN-NXKI
     Indication: Papillary thyroid cancer
  4. DATROWAY [Suspect]
     Active Substance: DATOPOTAMAB DERUXTECAN-DLNK
     Indication: Papillary thyroid cancer
  5. DATROWAY [Suspect]
     Active Substance: DATOPOTAMAB DERUXTECAN-DLNK
     Indication: Thyroid cancer metastatic
     Dates: start: 20250806, end: 20250806
  6. SELPERCATINIB [Suspect]
     Active Substance: SELPERCATINIB
     Indication: Papillary thyroid cancer
     Route: 065
  7. SELPERCATINIB [Suspect]
     Active Substance: SELPERCATINIB
     Indication: Thyroid cancer metastatic

REACTIONS (8)
  - Dyspnoea [Unknown]
  - Pneumonitis [Recovering/Resolving]
  - Mucosal inflammation [Recovering/Resolving]
  - Eye irritation [Recovering/Resolving]
  - Eye pruritus [Unknown]
  - Eye discharge [Recovering/Resolving]
  - Stomatitis [Recovering/Resolving]
  - Off label use [Unknown]
